FAERS Safety Report 20148799 (Version 2)
Quarter: 2022Q1

REPORT INFORMATION
  Report Type: Spontaneous
  Country: IL (occurrence: IL)
  Receive Date: 20211204
  Receipt Date: 20220121
  Transmission Date: 20220424
  Serious: Yes (Other)
  Sender: FDA-Public Use
  Company Number: IL-Stemline Therapeutics, Inc.-2021ST000068

PATIENT
  Age: 45 Year
  Sex: Female
  Weight: 63 kg

DRUGS (6)
  1. ELZONRIS [Suspect]
     Active Substance: TAGRAXOFUSP-ERZS
     Indication: Blastic plasmacytoid dendritic cell neoplasia
     Dosage: X 5 DAYS EVERY 21 DAYS
     Route: 042
     Dates: start: 20211122, end: 20211124
  2. ELZONRIS [Suspect]
     Active Substance: TAGRAXOFUSP-ERZS
     Dosage: X 5 DAYS EVERY 21 DAYS; CYCLE 2
     Route: 042
     Dates: start: 2021, end: 20211218
  3. DEXAMETHASONE [Concomitant]
     Active Substance: DEXAMETHASONE
     Indication: Blastic plasmacytoid dendritic cell neoplasia
     Dates: start: 20211114, end: 20211130
  4. OMEPRAZOLE [Concomitant]
     Active Substance: OMEPRAZOLE
     Indication: Prophylaxis against gastrointestinal ulcer
     Dates: start: 20211114, end: 20211218
  5. ALLOPURINOL [Concomitant]
     Active Substance: ALLOPURINOL
     Indication: Prophylaxis
     Dates: start: 20211114, end: 20211218
  6. TRIMETHOPRIM SULFAMETHAXAZOLE [Concomitant]
     Indication: Prophylaxis
     Dates: start: 20211114, end: 20211218

REACTIONS (5)
  - Transaminases increased [Recovered/Resolved]
  - Capillary leak syndrome [Recovered/Resolved]
  - Hepatic enzyme increased [Unknown]
  - Rash [Unknown]
  - Nausea [Recovering/Resolving]

NARRATIVE: CASE EVENT DATE: 20211122
